FAERS Safety Report 9610624 (Version 1)
Quarter: 2013Q4

REPORT INFORMATION
  Report Type: Spontaneous
  Country: US (occurrence: US)
  Receive Date: 20131009
  Receipt Date: 20131009
  Transmission Date: 20140711
  Serious: Yes (Other)
  Sender: FDA-Public Use
  Company Number: PHHY2013US111835

PATIENT
  Age: 66 Year
  Sex: Male

DRUGS (2)
  1. ACETYLSALICYLIC ACID [Suspect]
     Dates: start: 2010
  2. PLAVIX [Suspect]
     Dates: start: 2010

REACTIONS (2)
  - Iron deficiency anaemia [Unknown]
  - Gastrointestinal haemorrhage [Unknown]
